FAERS Safety Report 17345188 (Version 1)
Quarter: 2020Q1

REPORT INFORMATION
  Report Type: Spontaneous
  Country: US (occurrence: US)
  Receive Date: 20200129
  Receipt Date: 20200129
  Transmission Date: 20200409
  Serious: No
  Sender: FDA-Public Use
  Company Number: US-ALLERGAN-1945517US

PATIENT
  Age: 38 Year
  Sex: Female

DRUGS (3)
  1. BOTOX [Suspect]
     Active Substance: ONABOTULINUMTOXINA
     Dosage: 155 UNK, SINGLE
     Dates: start: 20190731, end: 20190731
  2. BOTOX [Suspect]
     Active Substance: ONABOTULINUMTOXINA
     Dosage: 155 UNITS, SINGLE
     Dates: start: 20190430, end: 20190430
  3. BOTOX [Suspect]
     Active Substance: ONABOTULINUMTOXINA
     Indication: MIGRAINE
     Dosage: 155 UNITS, SINGLE
     Dates: start: 20191106, end: 20191106

REACTIONS (1)
  - Hair growth abnormal [Not Recovered/Not Resolved]
